FAERS Safety Report 9827329 (Version 2)
Quarter: 2014Q1

REPORT INFORMATION
  Report Type: Spontaneous
  Country: LT (occurrence: LT)
  Receive Date: 20140117
  Receipt Date: 20140123
  Transmission Date: 20141002
  Serious: Yes (Life-Threatening, Hospitalization, Other)
  Sender: FDA-Public Use
  Company Number: LT-PFIZER INC-2014012461

PATIENT
  Age: 47 Year
  Sex: Female
  Weight: 70 kg

DRUGS (2)
  1. XANAX [Suspect]
     Dosage: 30 TABS X 1 MG TOTAL DOSE
     Dates: start: 20130116
  2. ESPRITAL [Suspect]
     Dosage: 10 TABS  X 30 MG, TOTAL DOSE
     Dates: start: 20130116

REACTIONS (4)
  - Overdose [Recovered/Resolved]
  - Suicide attempt [Recovered/Resolved]
  - Coma [Recovered/Resolved]
  - Hypotension [Recovered/Resolved]
